FAERS Safety Report 4309581-X (Version None)
Quarter: 2004Q1

REPORT INFORMATION
  Report Type: 
  Country: None (occurrence: None)
  Receive Date: 20040302
  Receipt Date: 20040220
  Transmission Date: 20041129
  Serious: Yes (Hospitalization, Disabling)
  Sender: FDA-Public Use
  Company Number: 2004200210US

PATIENT
  Age: 2 Year
  Sex: Male
  Weight: 9.8 kg

DRUGS (1)
  1. GENOTROPIN [Suspect]
     Indication: FOETAL GROWTH RETARDATION
     Dosage: 4.2 MG, WEEKLY (7 INJ/WEEK)
     Dates: start: 20030701, end: 20040124

REACTIONS (3)
  - CEREBRAL INFARCTION [None]
  - PLATELET COUNT INCREASED [None]
  - SPEECH DISORDER [None]
